FAERS Safety Report 4652489-0 (Version None)
Quarter: 2005Q2

REPORT INFORMATION
  Report Type: 
  Country: None (occurrence: None)
  Receive Date: 20050415
  Receipt Date: 20050415
  Transmission Date: 20051028
  Serious: Yes (Other)
  Sender: FDA-Public Use
  Company Number: None

PATIENT
  Age: 14 Year
  Sex: Female
  Weight: 55.7924 kg

DRUGS (2)
  1. PROMETHAZINE HCL W/ CODEINE [Suspect]
     Indication: ANTITUSSIVE THERAPY
     Dosage: 1 TSP EVERY 8 HRS
  2. GUAIFEN PSE ER TABLETS MFG - URL [Suspect]
     Indication: COUGH
     Dosage: 1 TABLET A DAY

REACTIONS (2)
  - DRUG DISPENSING ERROR [None]
  - INTERCEPTED MEDICATION ERROR [None]
